FAERS Safety Report 7033220-0 (Version None)
Quarter: 2010Q4

REPORT INFORMATION
  Report Type: 
  Country: None (occurrence: None)
  Receive Date: 20101004
  Receipt Date: 20100923
  Transmission Date: 20110411
  Serious: Yes (Congenital Anomaly, Other)
  Sender: FDA-Public Use
  Company Number: 2010US003932

PATIENT
  Sex: Female
  Weight: 2 kg

DRUGS (10)
  1. PROGRAF [Suspect]
     Indication: DRUG EXPOSURE DURING PREGNANCY
     Dosage: 2 MG, BID, ORAL; 3 MG, BID, ORAL; 4 MG, BID, ORAL; 5 MG, BID, ORAL
     Route: 048
     Dates: end: 20071231
  2. PROGRAF [Suspect]
     Indication: DRUG EXPOSURE DURING PREGNANCY
     Dosage: 2 MG, BID, ORAL; 3 MG, BID, ORAL; 4 MG, BID, ORAL; 5 MG, BID, ORAL
     Route: 048
     Dates: start: 20071231, end: 20080131
  3. PROGRAF [Suspect]
     Indication: DRUG EXPOSURE DURING PREGNANCY
     Dosage: 2 MG, BID, ORAL; 3 MG, BID, ORAL; 4 MG, BID, ORAL; 5 MG, BID, ORAL
     Route: 048
     Dates: start: 20080131, end: 20080714
  4. PROGRAF [Suspect]
     Indication: DRUG EXPOSURE DURING PREGNANCY
     Dosage: 2 MG, BID, ORAL; 3 MG, BID, ORAL; 4 MG, BID, ORAL; 5 MG, BID, ORAL
     Route: 048
     Dates: start: 20080714
  5. AZATHIOPRINE [Concomitant]
  6. PREDNISONE TAB [Concomitant]
  7. MYCOPHENOLATE MOFETIL [Concomitant]
  8. LABETALOL HCL [Concomitant]
  9. COUMADIN [Concomitant]
  10. LOVENOX [Concomitant]

REACTIONS (4)
  - CAESAREAN SECTION [None]
  - MATERNAL DRUGS AFFECTING FOETUS [None]
  - PREMATURE BABY [None]
  - VENTRICULAR SEPTAL DEFECT [None]
